FAERS Safety Report 7804042-5 (Version None)
Quarter: 2011Q4

REPORT INFORMATION
  Report Type: 
  Country: None (occurrence: None)
  Receive Date: 20111010
  Receipt Date: 20111003
  Transmission Date: 20120403
  Serious: Yes (Other)
  Sender: FDA-Public Use
  Company Number: US-JNJFOC-20111001479

PATIENT
  Age: 90 Year
  Sex: Female

DRUGS (1)
  1. LEVAQUIN [Suspect]
     Indication: OSTEOMYELITIS
     Route: 065

REACTIONS (1)
  - DEMENTIA [None]
